FAERS Safety Report 5068260-4 (Version None)
Quarter: 2006Q3

REPORT INFORMATION
  Report Type: 
  Country: None (occurrence: None)
  Receive Date: 20060802
  Receipt Date: 20050629
  Transmission Date: 20061208
  Serious: Yes (Other)
  Sender: FDA-Public Use
  Company Number: US-BRISTOL-MYERS SQUIBB COMPANY-13019799

PATIENT
  Age: 75 Year
  Sex: Male
  Weight: 53 kg

DRUGS (9)
  1. COUMADIN [Suspect]
     Indication: CEREBROVASCULAR DISORDER
     Dates: start: 20000201
  2. ENSURE [Concomitant]
  3. PREVACID [Concomitant]
  4. ATENOLOL [Concomitant]
  5. REMERON [Concomitant]
  6. DITROPAN [Concomitant]
  7. COLACE [Concomitant]
  8. FLOMAX [Concomitant]
  9. BUSPAR [Concomitant]

REACTIONS (2)
  - INTERNATIONAL NORMALISED RATIO DECREASED [None]
  - WEIGHT DECREASED [None]
